FAERS Safety Report 23224960 (Version 1)
Quarter: 2023Q4

REPORT INFORMATION
  Report Type: Spontaneous
  Country: FR (occurrence: FR)
  Receive Date: 20231124
  Receipt Date: 20231124
  Transmission Date: 20240109
  Serious: Yes (Hospitalization)
  Sender: FDA-Public Use
  Company Number: FR-AFSSAPS-CN2023001063

PATIENT
  Age: 67 Year
  Sex: Male
  Weight: 67.9 kg

DRUGS (8)
  1. LINEZOLID [Suspect]
     Active Substance: LINEZOLID
     Indication: Bronchiolitis
     Dosage: 600 MILLIGRAM (600 MG DE LINEZOLIDE, EN 2 SOCKETS PER DAY (1200MG/J)
     Route: 042
     Dates: start: 20231015, end: 20231103
  2. ACYCLOVIR [Concomitant]
     Active Substance: ACYCLOVIR
     Indication: Oral herpes
     Dosage: 500 MILLIGRAM (3 SOCKETS OF 500 MG D^ACICLOVIR PER DAY))
     Route: 042
     Dates: start: 20231018
  3. INSULIN GLARGINE [Concomitant]
     Active Substance: INSULIN GLARGINE
     Indication: Diabetes mellitus inadequate control
     Dosage: 40 INTERNATIONAL UNIT, ONCE A DAY (AUGMENTATION PROGRESSIVE DE DOSE : 12 UI PAR JOUR LE 20/10 ? 38 U
     Route: 058
     Dates: start: 20231020
  4. CASPOFUNGIN [Concomitant]
     Active Substance: CASPOFUNGIN
     Indication: Stomatitis
     Dosage: 50 MILLIGRAM, ONCE A DAY 50 MG IN ONE TAKE OF CASPOFUNGINE PER DAY)
     Route: 042
     Dates: start: 20231018
  5. CEFTAZIDIME [Concomitant]
     Active Substance: CEFTAZIDIME
     Indication: Escherichia bacteraemia
     Dosage: 2000 MILLIGRAM (3 SOCKETS OF 2000 MG OF CEFTAZIDIME, PER DAY)
     Route: 065
     Dates: start: 20231030
  6. METRONIDAZOLE [Concomitant]
     Active Substance: METRONIDAZOLE
     Indication: Escherichia bacteraemia
     Dosage: 500 MILLIGRAM (3 SOCKETS OF  500 MG OF METRONIDAZOLE, PER DAY)
     Route: 065
     Dates: start: 20231030
  7. MEROPENEM [Concomitant]
     Active Substance: MEROPENEM
     Indication: Escherichia bacteraemia
     Dosage: 2000 MILLIGRAM (3 SOCKETS OF 2000 MG OF MERONEM PER DAY)
     Route: 042
     Dates: start: 20231027
  8. PANTOPRAZOLE [Concomitant]
     Active Substance: PANTOPRAZOLE
     Indication: Gastrointestinal haemorrhage
     Dosage: 40 MILLIGRAM, ONCE A DAY (40 MG PER DAY OF PANTOPRAZOLE)
     Route: 042
     Dates: start: 20231029

REACTIONS (1)
  - Hyperlactacidaemia [Recovered/Resolved]

NARRATIVE: CASE EVENT DATE: 20231030
